FAERS Safety Report 9845325 (Version 1)
Quarter: 2014Q1

REPORT INFORMATION
  Report Type: Spontaneous
  Country: US (occurrence: US)
  Receive Date: 20140127
  Receipt Date: 20140127
  Transmission Date: 20141002
  Serious: Yes (Other)
  Sender: FDA-Public Use
  Company Number: US-SA-2014SA009651

PATIENT
  Sex: Male
  Weight: 77 kg

DRUGS (7)
  1. PLAVIX [Suspect]
     Route: 048
  2. ASPIRIN [Concomitant]
  3. LISINOPRIL [Concomitant]
  4. ATORVASTATIN CALCIUM [Concomitant]
  5. TAMSULOSIN HYDROCHLORIDE [Concomitant]
  6. VALIUM [Concomitant]
  7. TAMBOCOR [Suspect]
     Route: 065

REACTIONS (7)
  - Myocardial infarction [Unknown]
  - Chest pain [Unknown]
  - Dyspepsia [Unknown]
  - Pain in jaw [Unknown]
  - Atrial fibrillation [Unknown]
  - Bradycardia [Unknown]
  - Gait disturbance [Unknown]
